FAERS Safety Report 4844769-0 (Version None)
Quarter: 2005Q4

REPORT INFORMATION
  Report Type: 
  Country: None (occurrence: None)
  Receive Date: 20051201
  Receipt Date: 20051201
  Transmission Date: 20060501
  Serious: Yes (Hospitalization)
  Sender: FDA-Public Use
  Company Number: None

PATIENT
  Age: 80 Year
  Sex: Male
  Weight: 90.72 kg

DRUGS (5)
  1. COUMADIN [Suspect]
     Indication: ATRIAL FIBRILLATION
     Dosage: 5 MG PO Q DAY
     Route: 048
  2. CIPRO [Suspect]
  3. PRILOSEC [Suspect]
     Indication: GASTROOESOPHAGEAL REFLUX DISEASE
     Dosage: 20 MG PO Q DAY
     Route: 048
  4. PROTONIX [Concomitant]
  5. LEVAQUIN [Concomitant]

REACTIONS (4)
  - BLOOD URINE PRESENT [None]
  - DRUG DISPENSING ERROR [None]
  - DRUG INTERACTION [None]
  - INTERNATIONAL NORMALISED RATIO INCREASED [None]
